FAERS Safety Report 5311079-7 (Version None)
Quarter: 2007Q2

REPORT INFORMATION
  Report Type: 
  Country: None (occurrence: None)
  Receive Date: 20070427
  Receipt Date: 20070427
  Transmission Date: 20071010
  Serious: Yes (Death, Hospitalization)
  Sender: FDA-Public Use
  Company Number: None

PATIENT
  Age: 47 Year
  Sex: Male
  Weight: 81.6475 kg

DRUGS (2)
  1. FENTANYL [Suspect]
     Indication: PARAESTHESIA
     Dosage: 25MICGM Q48? TOPICAL PATCH
     Route: 061
     Dates: start: 20070301, end: 20070325
  2. FENTANYL [Suspect]
     Indication: POLYNEUROPATHY
     Dosage: 25MICGM Q48? TOPICAL PATCH
     Route: 061
     Dates: start: 20070301, end: 20070325

REACTIONS (4)
  - DIZZINESS [None]
  - NAUSEA [None]
  - PHARMACEUTICAL PRODUCT COMPLAINT [None]
  - VERTIGO [None]
